FAERS Safety Report 17435793 (Version 3)
Quarter: 2021Q1

REPORT INFORMATION
  Report Type: Spontaneous
  Country: US (occurrence: US)
  Receive Date: 20200219
  Receipt Date: 20210301
  Transmission Date: 20210419
  Serious: No
  Sender: FDA-Public Use
  Company Number: US-PFIZER INC-2020074503

PATIENT
  Age: 59 Year
  Sex: Female
  Weight: 111.56 kg

DRUGS (4)
  1. FASLODEX [Concomitant]
     Active Substance: FULVESTRANT
     Dosage: UNK
     Route: 030
     Dates: start: 2015
  2. IBRANCE [Suspect]
     Active Substance: PALBOCICLIB
     Indication: NEOPLASM MALIGNANT
     Dosage: 125 MG, CYCLIC [125 MG DAILY FOR 21 DAYS REPORTED 2XDAY]
     Dates: start: 2015
  3. XGEVA [Concomitant]
     Active Substance: DENOSUMAB
     Dosage: UNK
     Dates: start: 2013
  4. IBRANCE [Suspect]
     Active Substance: PALBOCICLIB
     Dosage: 125 MG
     Dates: start: 20171003

REACTIONS (5)
  - Dry throat [Not Recovered/Not Resolved]
  - Illness [Unknown]
  - Dehydration [Not Recovered/Not Resolved]
  - White blood cell count decreased [Unknown]
  - Cough [Not Recovered/Not Resolved]
